FAERS Safety Report 10056880 (Version 1)
Quarter: 2014Q2

REPORT INFORMATION
  Report Type: Report from Study
  Country: CA (occurrence: CA)
  Receive Date: 20140403
  Receipt Date: 20140403
  Transmission Date: 20141212
  Serious: Yes (Hospitalization)
  Sender: FDA-Public Use
  Company Number: CA-JNJFOC-20140318284

PATIENT
  Age: 69 Year
  Sex: Male
  Weight: 66.5 kg

DRUGS (8)
  1. REMICADE [Suspect]
     Indication: COLITIS ULCERATIVE
     Route: 042
     Dates: start: 2013
  2. 5-AMINOSALICYLIC ACID [Concomitant]
     Route: 048
  3. ASA [Concomitant]
     Route: 048
  4. ALFUZOSIN [Concomitant]
     Dosage: DURING SLEEP
     Route: 048
  5. FERROUS FUMERATE [Concomitant]
     Route: 048
  6. PANTOPRAZOLE [Concomitant]
     Route: 048
  7. RAMIPRIL [Concomitant]
     Route: 048
  8. INSULIN [Concomitant]
     Route: 065

REACTIONS (2)
  - Diarrhoea [Recovered/Resolved]
  - Influenza [Recovered/Resolved]
